FAERS Safety Report 6967425-1 (Version None)
Quarter: 2010Q3

REPORT INFORMATION
  Report Type: 
  Country: None (occurrence: None)
  Receive Date: 20100907
  Receipt Date: 20100830
  Transmission Date: 20110219
  Serious: Yes (Other)
  Sender: FDA-Public Use
  Company Number: US-JNJFOC-20100208728

PATIENT
  Sex: Male
  Weight: 78.93 kg

DRUGS (16)
  1. FENTANYL CITRATE [Suspect]
     Indication: ARTHRALGIA
     Route: 062
  2. FENTANYL CITRATE [Suspect]
     Dosage: 12.5 UG/HR -100 UG/HR
     Route: 062
  3. FENTANYL CITRATE [Suspect]
     Route: 062
  4. FENTANYL CITRATE [Suspect]
     Route: 062
  5. FENTANYL CITRATE [Suspect]
     Route: 062
  6. TYLENOL W/ CODEINE [Concomitant]
     Route: 048
  7. PRILOSEC [Concomitant]
     Indication: GASTRIC DISORDER
     Route: 048
     Dates: start: 20090101
  8. LEVOTHYROXINE SODIUM [Concomitant]
     Indication: HYPOTHYROIDISM
     Route: 048
     Dates: start: 20090101
  9. PROZAC [Concomitant]
     Indication: DEPRESSION
     Route: 048
     Dates: start: 20090101
  10. COREG [Concomitant]
     Indication: CARDIAC DISORDER
     Route: 048
     Dates: start: 20060101
  11. MONOPRIL [Concomitant]
     Indication: CARDIAC DISORDER
     Route: 048
     Dates: start: 20070101
  12. TRIMETHOPRIM + SULFAMETHOXAZOLE [Concomitant]
     Indication: STAPHYLOCOCCAL INFECTION
     Dosage: 800-160/TABLET/800-160 ONCE DAILY/ORAL
  13. AMOXICILLIN [Concomitant]
     Indication: STAPHYLOCOCCAL INFECTION
     Route: 048
  14. RIFAMPICIN [Concomitant]
     Indication: STAPHYLOCOCCAL INFECTION
     Route: 048
  15. COUMADIN [Concomitant]
     Indication: HEART VALVE REPLACEMENT
     Dosage: 10MG/TABLET/10 MG ALTERNATE WITH 71/2MG/ TABLET/7 1/2 MG EVERY OTHER DAY ONE DAILY/ORAL
     Route: 048
  16. CRESTOR [Concomitant]
     Indication: BLOOD CHOLESTEROL INCREASED
     Route: 048

REACTIONS (6)
  - DRUG INEFFECTIVE [None]
  - FATIGUE [None]
  - HIP ARTHROPLASTY [None]
  - SOMNOLENCE [None]
  - THERAPEUTIC RESPONSE DECREASED [None]
  - WRONG TECHNIQUE IN DRUG USAGE PROCESS [None]
